FAERS Safety Report 5963416-8 (Version None)
Quarter: 2008Q4

REPORT INFORMATION
  Report Type: 
  Country: None (occurrence: None)
  Receive Date: 20081121
  Receipt Date: 20081121
  Transmission Date: 20090506
  Serious: Yes (Hospitalization)
  Sender: FDA-Public Use
  Company Number: None

PATIENT
  Age: 86 Year
  Sex: Female

DRUGS (2)
  1. PHENYTOIN [Suspect]
     Indication: CONVULSION
  2. CARTIA XT [Concomitant]

REACTIONS (4)
  - DRUG LEVEL INCREASED [None]
  - HALLUCINATION [None]
  - MENTAL STATUS CHANGES [None]
  - RESTLESSNESS [None]
